FAERS Safety Report 19499853 (Version 1)
Quarter: 2021Q3

REPORT INFORMATION
  Report Type: Spontaneous
  Country: US (occurrence: US)
  Receive Date: 20210706
  Receipt Date: 20210706
  Transmission Date: 20211014
  Serious: No
  Sender: FDA-Public Use
  Company Number: US-BAUSCH-BL-2021-018089

PATIENT
  Age: 68 Year
  Sex: Male
  Weight: 90.8 kg

DRUGS (6)
  1. SOOTHE LONG LASTING (PRESERVATIVE FREE) [Suspect]
     Active Substance: GLYCERIN\PROPYLENE GLYCOL
     Indication: EYE IRRITATION
     Dosage: ON A REGULAR BASIS
     Route: 047
     Dates: start: 2021, end: 2021
  2. SOOTHE LONG LASTING (PRESERVATIVE FREE) [Suspect]
     Active Substance: GLYCERIN\PROPYLENE GLYCOL
     Indication: EYE PRURITUS
     Dosage: RESTARTED
     Route: 047
     Dates: start: 2021
  3. DORZOLAMIDE HCL [Concomitant]
     Active Substance: DORZOLAMIDE HYDROCHLORIDE
     Indication: PRODUCT USED FOR UNKNOWN INDICATION
     Route: 047
  4. VYZULTA [Suspect]
     Active Substance: LATANOPROSTENE BUNOD
     Indication: GLAUCOMA
     Dosage: ABOUT A MONTH AGO PRIOR TO THE DATE OF THIS REPORT (/APR/2021). ONE DROP IN EACH EYE
     Route: 047
     Dates: start: 202104, end: 2021
  5. VYZULTA [Suspect]
     Active Substance: LATANOPROSTENE BUNOD
     Dosage: RESTARTED VYZULTA. ONE DROP IN EACH EYE
     Route: 047
     Dates: start: 2021
  6. RHOPRESSA [Concomitant]
     Active Substance: NETARSUDIL MESYLATE
     Indication: PRODUCT USED FOR UNKNOWN INDICATION
     Route: 047

REACTIONS (5)
  - Eye irritation [Unknown]
  - Drug ineffective [Unknown]
  - Eye pruritus [Unknown]
  - Drug hypersensitivity [Unknown]
  - Intraocular pressure increased [Unknown]

NARRATIVE: CASE EVENT DATE: 2021
